FAERS Safety Report 10169904 (Version 2)
Quarter: 2014Q2

REPORT INFORMATION
  Report Type: Report from Study
  Country: US (occurrence: US)
  Receive Date: 20140513
  Receipt Date: 20140521
  Transmission Date: 20141212
  Serious: Yes (Other)
  Sender: FDA-Public Use
  Company Number: PHEH2014US009421

PATIENT
  Sex: Male

DRUGS (1)
  1. ZORTRESS [Suspect]
     Dosage: 0.5 MG, BID
     Route: 048

REACTIONS (2)
  - Cerebrovascular accident [Unknown]
  - Bradyphrenia [Unknown]
